FAERS Safety Report 6448697-9 (Version None)
Quarter: 2009Q4

REPORT INFORMATION
  Report Type: 
  Country: None (occurrence: None)
  Receive Date: 20091120
  Receipt Date: 20091016
  Transmission Date: 20100525
  Serious: No
  Sender: FDA-Public Use
  Company Number: US-KINGPHARMUSA00001-K200901288

PATIENT
  Age: 59 Year
  Sex: Male
  Weight: 213.15 kg

DRUGS (6)
  1. FLECTOR [Suspect]
     Indication: ARTHRALGIA
     Dosage: 1 PATCH, QD
     Route: 061
     Dates: start: 20091015
  2. FLECTOR [Suspect]
     Indication: ARTHRITIS
  3. LOPRESSOR [Concomitant]
     Indication: HYPERTENSION
     Dosage: UNK
  4. DIURETICS [Concomitant]
     Dosage: UNK
     Dates: end: 20091015
  5. LISINOPRIL [Concomitant]
     Indication: HYPERTENSION
     Dosage: UNK
  6. COUMADIN [Concomitant]
     Indication: ANTICOAGULANT THERAPY
     Dosage: UNK

REACTIONS (3)
  - DYSPNOEA [None]
  - EYE BURNS [None]
  - LACRIMATION INCREASED [None]
